FAERS Safety Report 4788054-4 (Version None)
Quarter: 2005Q4

REPORT INFORMATION
  Report Type: 
  Country: None (occurrence: None)
  Receive Date: 20051004
  Receipt Date: 20051004
  Transmission Date: 20060501
  Serious: Yes (Hospitalization)
  Sender: FDA-Public Use
  Company Number: None

PATIENT
  Age: 72 Year
  Sex: Male
  Weight: 129.2752 kg

DRUGS (2)
  1. WARFARIN    7.5MG [Suspect]
     Indication: PULMONARY EMBOLISM
     Dosage: 7.5 MG   DAILY   PO
     Route: 048
     Dates: start: 20050701, end: 20051003
  2. CAPECITABINE     500 MG [Suspect]
     Indication: COLON CANCER
     Dosage: 2000 MG   X14 DAYS DAILY   PO
     Route: 048
     Dates: start: 20050901, end: 20050929

REACTIONS (5)
  - BONE MARROW FAILURE [None]
  - CONSTIPATION [None]
  - DRUG TOXICITY [None]
  - GASTROINTESTINAL HAEMORRHAGE [None]
  - INTERNATIONAL NORMALISED RATIO INCREASED [None]
